FAERS Safety Report 5678273-7 (Version None)
Quarter: 2008Q1

REPORT INFORMATION
  Report Type: 
  Country: None (occurrence: None)
  Receive Date: 20080319
  Receipt Date: 20080310
  Transmission Date: 20080703
  Serious: Yes (Other)
  Sender: FDA-Public Use
  Company Number: 2008AP000636

PATIENT
  Sex: Male

DRUGS (8)
  1. PAROXETINE HCL [Suspect]
     Indication: DRUG USE FOR UNKNOWN INDICATION
     Dosage: 20 MG; 20 MG; QD; 20 MG;
     Dates: start: 19960311
  2. PAROXETINE HCL [Suspect]
     Indication: DRUG USE FOR UNKNOWN INDICATION
     Dosage: 20 MG; 20 MG; QD; 20 MG;
     Dates: start: 19960621
  3. PAROXETINE HCL [Suspect]
     Indication: DRUG USE FOR UNKNOWN INDICATION
     Dosage: 20 MG; 20 MG; QD; 20 MG;
     Dates: start: 19980824
  4. ETHANOL (ETHANOL) [Suspect]
  5. DOSULEPIN (DOSULEPIN) [Concomitant]
  6. LANSOPRAZOLE [Concomitant]
  7. TEMAZEPAM [Concomitant]
  8. ZOLPICLONE (ZOPICLONE) [Concomitant]

REACTIONS (9)
  - ALCOHOL POISONING [None]
  - DRUG WITHDRAWAL SYNDROME [None]
  - FALL [None]
  - HAEMATEMESIS [None]
  - INTENTIONAL SELF-INJURY [None]
  - LIMB INJURY [None]
  - SKIN LACERATION [None]
  - SUICIDAL IDEATION [None]
  - VERTEBRAL INJURY [None]
